FAERS Safety Report 25402094 (Version 2)
Quarter: 2025Q4

REPORT INFORMATION
  Report Type: Spontaneous
  Country: RU (occurrence: RU)
  Receive Date: 20250605
  Receipt Date: 20251120
  Transmission Date: 20260117
  Serious: Yes (Other)
  Sender: ROCHE
  Company Number: RU-ROCHE-10000302360

PATIENT
  Age: 15 Year

DRUGS (3)
  1. COLUMVI [Suspect]
     Active Substance: GLOFITAMAB-GXBM
     Indication: Product used for unknown indication
     Route: 065
  2. COLUMVI [Suspect]
     Active Substance: GLOFITAMAB-GXBM
     Route: 065
     Dates: start: 202506
  3. COLUMVI [Suspect]
     Active Substance: GLOFITAMAB-GXBM
     Route: 065

REACTIONS (2)
  - Staphylococcal sepsis [Unknown]
  - Off label use [Unknown]
